FAERS Safety Report 19250690 (Version 1)
Quarter: 2021Q2

REPORT INFORMATION
  Report Type: Spontaneous
  Country: US (occurrence: US)
  Receive Date: 20210512
  Receipt Date: 20210512
  Transmission Date: 20210717
  Serious: No
  Sender: FDA-Public Use
  Company Number: US-SA-2021SA155146

PATIENT
  Sex: Female

DRUGS (1)
  1. DUPIXENT [Suspect]
     Active Substance: DUPILUMAB
     Indication: ILL-DEFINED DISORDER
     Dosage: UNK
     Route: 058

REACTIONS (6)
  - Eye pruritus [Unknown]
  - Wheezing [Not Recovered/Not Resolved]
  - Productive cough [Unknown]
  - Dry eye [Unknown]
  - Blepharospasm [Unknown]
  - Urticaria [Unknown]
